FAERS Safety Report 17462500 (Version 1)
Quarter: 2020Q1

REPORT INFORMATION
  Report Type: Spontaneous
  Country: US (occurrence: US)
  Receive Date: 20200226
  Receipt Date: 20200226
  Transmission Date: 20200409
  Serious: No
  Sender: FDA-Public Use
  Company Number: US-ELI_LILLY_AND_COMPANY-US202002006302

PATIENT
  Age: 41 Year
  Sex: Female

DRUGS (2)
  1. HUMALOG MIX75/25 [Suspect]
     Active Substance: INSULIN LISPRO
     Dosage: 50 U, EACH EVENING
     Route: 065
     Dates: start: 201911
  2. HUMALOG MIX75/25 [Suspect]
     Active Substance: INSULIN LISPRO
     Indication: DIABETES MELLITUS
     Dosage: 46 U, EACH MORNING
     Route: 065
     Dates: start: 201911

REACTIONS (3)
  - Dizziness [Unknown]
  - Blood glucose increased [Recovering/Resolving]
  - Night sweats [Unknown]

NARRATIVE: CASE EVENT DATE: 20200210
